FAERS Safety Report 5858025-5 (Version None)
Quarter: 2008Q3

REPORT INFORMATION
  Report Type: 
  Country: None (occurrence: None)
  Receive Date: 20080826
  Receipt Date: 20080818
  Transmission Date: 20090109
  Serious: Yes (Other)
  Sender: FDA-Public Use
  Company Number: US-BAYER-200828512NA

PATIENT
  Age: 15 Month
  Sex: Male
  Weight: 11 kg

DRUGS (6)
  1. CIPRO [Suspect]
     Indication: BACTERIAL DISEASE CARRIER
     Dosage: TOTAL DAILY DOSE: 10 ML
     Route: 048
     Dates: start: 20070920, end: 20070929
  2. CIPRO [Suspect]
     Dosage: TOTAL DAILY DOSE: 10 ML
     Route: 048
     Dates: start: 20071023, end: 20071101
  3. CREON 5 PANCREATIC ENZYMES [Concomitant]
  4. PREVACID [Concomitant]
  5. VITAMAX [Concomitant]
     Dosage: TOTAL DAILY DOSE: 2 ML
  6. FLUORIDE [Concomitant]

REACTIONS (1)
  - DIARRHOEA [None]
